FAERS Safety Report 5873341-9 (Version None)
Quarter: 2008Q3

REPORT INFORMATION
  Report Type: 
  Country: None (occurrence: None)
  Receive Date: 20080829
  Receipt Date: 20071210
  Transmission Date: 20090109
  Serious: Yes (Hospitalization)
  Sender: FDA-Public Use
  Company Number: 2007-01096FE

PATIENT
  Age: 64 Year
  Sex: Male

DRUGS (3)
  1. TRH (TRH) (PROTIRELIN) [Suspect]
     Dosage: 200 MCG ONCE
     Route: 042
  2. GNRH (GONADORELIN) [Suspect]
     Route: 036
  3. METHYLPREDNISOLONE 16MG TAB [Concomitant]

REACTIONS (13)
  - ANOREXIA [None]
  - APATHY [None]
  - BRONCHITIS [None]
  - HYPOTENSION [None]
  - IIIRD NERVE PARALYSIS [None]
  - INFECTION [None]
  - IVTH NERVE PARALYSIS [None]
  - PHARYNGEAL DISORDER [None]
  - PITUITARY HAEMORRHAGE [None]
  - SECONDARY HYPOGONADISM [None]
  - SINUSITIS [None]
  - SOFT TISSUE NECROSIS [None]
  - VITH NERVE PARALYSIS [None]
